FAERS Safety Report 24915058 (Version 4)
Quarter: 2025Q2

REPORT INFORMATION
  Report Type: Spontaneous
  Country: US (occurrence: US)
  Receive Date: 20250203
  Receipt Date: 20250627
  Transmission Date: 20250716
  Serious: No
  Sender: BRISTOL-MYERS SQUIBB COMPANY
  Company Number: US-BRISTOL-MYERS SQUIBB COMPANY-2025-014712

PATIENT
  Age: 65 Year
  Sex: Female

DRUGS (3)
  1. AUGTYRO [Suspect]
     Active Substance: REPOTRECTINIB
     Indication: Product used for unknown indication
     Route: 048
  2. AUGTYRO [Suspect]
     Active Substance: REPOTRECTINIB
     Dosage: TAKE 3 CAPSULES BY MOUTH TWICE DAILY
     Route: 048
  3. AUGTYRO [Suspect]
     Active Substance: REPOTRECTINIB
     Dosage: STRENGTHH: 40MG- DOSE : 2 CAPSULES TWICE DAILY; FREQ : 2 CAPSULES IN THE MORNING AND 2 CAPSULES BEFO
     Route: 048

REACTIONS (3)
  - Escherichia test positive [Unknown]
  - Dizziness [Unknown]
  - Dysphagia [Unknown]
